FAERS Safety Report 12670383 (Version 1)
Quarter: 2016Q3

REPORT INFORMATION
  Report Type: Spontaneous
  Country: US (occurrence: US)
  Receive Date: 20160822
  Receipt Date: 20160822
  Transmission Date: 20161109
  Serious: No
  Sender: FDA-Public Use
  Company Number: US-GLAXOSMITHKLINE-CHPA2016US001934

PATIENT
  Age: 80 Year
  Sex: Male

DRUGS (1)
  1. EXCEDRIN MIGRAINE [Suspect]
     Active Substance: ACETAMINOPHEN\ASPIRIN\CAFFEINE
     Indication: MIGRAINE
     Dosage: 2 DF, UNK
     Route: 048
     Dates: start: 20160203

REACTIONS (4)
  - Feeling abnormal [Recovering/Resolving]
  - Migraine [Recovered/Resolved]
  - Pain [Recovering/Resolving]
  - Drug ineffective [Recovering/Resolving]
